FAERS Safety Report 6972633-X (Version None)
Quarter: 2010Q3

REPORT INFORMATION
  Report Type: 
  Country: None (occurrence: None)
  Receive Date: 20100907
  Receipt Date: 20100823
  Transmission Date: 20110219
  Serious: Yes (Death, Hospitalization)
  Sender: FDA-Public Use
  Company Number: 2010AC000282

PATIENT
  Age: 85 Year
  Sex: Female

DRUGS (11)
  1. DIGOXIN [Suspect]
     Dosage: ; PO
     Route: 048
     Dates: start: 20080303, end: 20080416
  2. DIGOXIN [Suspect]
     Dosage: .250 MG; QD; PO
     Route: 048
     Dates: start: 20080401
  3. *SENNA/MOM [Concomitant]
  4. BISACODYL [Concomitant]
  5. COUMADIN [Concomitant]
  6. METOPROLOL TARTRATE [Concomitant]
  7. NORVASC [Concomitant]
  8. ASPIRIN [Concomitant]
  9. FERROUS SULFATE TAB [Concomitant]
  10. LASIX [Concomitant]
  11. LISINOPRIL [Concomitant]

REACTIONS (45)
  - ACUTE MYOCARDIAL INFARCTION [None]
  - AORTIC CALCIFICATION [None]
  - AORTIC DILATATION [None]
  - ARTERIOSCLEROSIS [None]
  - ATELECTASIS [None]
  - BLOOD PRESSURE SYSTOLIC DECREASED [None]
  - CARDIOMEGALY [None]
  - CLOSTRIDIUM DIFFICILE COLITIS [None]
  - CLOSTRIDIUM TEST POSITIVE [None]
  - COAGULOPATHY [None]
  - CORONARY ARTERY DISEASE [None]
  - DIVERTICULUM INTESTINAL [None]
  - DUODENAL FISTULA [None]
  - EMBOLIC STROKE [None]
  - EROSIVE OESOPHAGITIS [None]
  - FALL [None]
  - GAIT DISTURBANCE [None]
  - GASTRITIS [None]
  - GASTROINTESTINAL HAEMORRHAGE [None]
  - HYPOKALAEMIA [None]
  - HYPOPHAGIA [None]
  - HYPOTENSION [None]
  - HYPOVOLAEMIA [None]
  - HYPOXIA [None]
  - INTERNATIONAL NORMALISED RATIO DECREASED [None]
  - INTERNATIONAL NORMALISED RATIO INCREASED [None]
  - INTESTINAL DILATATION [None]
  - LEFT ATRIAL DILATATION [None]
  - LUNG CONSOLIDATION [None]
  - MULTIPLE INJURIES [None]
  - OESOPHAGITIS [None]
  - PLEURAL EFFUSION [None]
  - PLEURAL FIBROSIS [None]
  - RENAL ATROPHY [None]
  - RENAL CYST [None]
  - RENAL FAILURE ACUTE [None]
  - RHONCHI [None]
  - RIGHT ATRIAL DILATATION [None]
  - SMALL INTESTINAL OBSTRUCTION [None]
  - SPLEEN DISORDER [None]
  - SYNCOPE [None]
  - THROMBOSIS [None]
  - UNRESPONSIVE TO STIMULI [None]
  - UPPER GASTROINTESTINAL HAEMORRHAGE [None]
  - WOUND INFECTION STAPHYLOCOCCAL [None]
